FAERS Safety Report 8867703 (Version 1)
Quarter: 2012Q4

REPORT INFORMATION
  Report Type: 
  Country: US (occurrence: US)
  Receive Date: 20121025
  Receipt Date: 20121025
  Transmission Date: 20130627
  Serious: No
  Sender: FDA-Public Use
  Company Number: US-AMGEN-USASP2012018127

PATIENT
  Age: 63 Year
  Sex: Female
  Weight: 92.52 kg

DRUGS (10)
  1. ENBREL [Suspect]
     Indication: PRODUCT USED FOR UNKNOWN INDICATION
     Dosage: 25 mg, 2 times/wk
     Route: 058
     Dates: start: 200411
  2. PRAVASTATIN [Concomitant]
     Dosage: 40 mg, UNK
  3. CLARITIN                           /00413701/ [Concomitant]
     Dosage: 10 mg, UNK
  4. BYETTA [Concomitant]
     Dosage: 10 mug, UNK
  5. VITAMIN D /00107901/ [Concomitant]
     Dosage: 1000 IU, UNK
  6. ATENOLOL [Concomitant]
     Dosage: 25 mg, UNK
  7. HYDROCHLOROTH [Concomitant]
     Dosage: 12.5 mg, UNK
  8. FISH OIL [Concomitant]
     Dosage: 1000 mg, UNK
  9. VITAMIN C                          /00008001/ [Concomitant]
     Dosage: 1000 mg, UNK
  10. LANTUS [Concomitant]

REACTIONS (1)
  - Staphylococcal infection [Unknown]
